FAERS Safety Report 5729410-7 (Version None)
Quarter: 2008Q2

REPORT INFORMATION
  Report Type: 
  Country: None (occurrence: None)
  Receive Date: 20080506
  Receipt Date: 20080425
  Transmission Date: 20081010
  Serious: Yes (Other)
  Sender: FDA-Public Use
  Company Number: PL-GENENTECH-255395

PATIENT
  Sex: Female
  Weight: 52 kg

DRUGS (4)
  1. BEVACIZUMAB [Suspect]
     Indication: BREAST CANCER METASTATIC
     Dosage: 675 MG, Q3W
     Route: 042
     Dates: start: 20070703, end: 20071023
  2. DOCETAXEL [Concomitant]
     Indication: BREAST CANCER METASTATIC
     Dosage: UNK, UNK
     Dates: start: 20070703, end: 20071023
  3. DIOSMIN [Concomitant]
     Indication: DRUG USE FOR UNKNOWN INDICATION
     Dates: start: 20070811
  4. HEPATIL [Concomitant]
     Indication: DRUG USE FOR UNKNOWN INDICATION
     Dosage: 450 MG, UNK
     Dates: start: 20070702

REACTIONS (1)
  - OEDEMA PERIPHERAL [None]
